FAERS Safety Report 22759653 (Version 4)
Quarter: 2024Q3

REPORT INFORMATION
  Report Type: Report from Study
  Country: US (occurrence: US)
  Receive Date: 20230728
  Receipt Date: 20240912
  Transmission Date: 20241016
  Serious: Yes (Disabling, Other)
  Sender: ABBVIE
  Company Number: US-ABBVIE-5343595

PATIENT
  Sex: Male

DRUGS (1)
  1. SKYRIZI [Suspect]
     Active Substance: RISANKIZUMAB-RZAA
     Indication: Psoriasis
     Route: 058
     Dates: start: 20220311

REACTIONS (6)
  - Disability [Unknown]
  - Memory impairment [Unknown]
  - Psoriasis [Recovered/Resolved]
  - Neoplasm malignant [Unknown]
  - Blood glucose increased [Unknown]
  - Type 2 diabetes mellitus [Unknown]

NARRATIVE: CASE EVENT DATE: 20220101
